FAERS Safety Report 7423242-X (Version None)
Quarter: 2011Q2

REPORT INFORMATION
  Report Type: 
  Country: None (occurrence: None)
  Receive Date: 20110413
  Receipt Date: 20110413
  Transmission Date: 20111010
  Serious: Yes (Hospitalization)
  Sender: FDA-Public Use
  Company Number: None

PATIENT
  Sex: Male
  Weight: 58.5 kg

DRUGS (6)
  1. FAMOTIDINE [Concomitant]
  2. DECADRON [Concomitant]
  3. CARBOPLATIN [Suspect]
     Dosage: 940 MG
     Dates: end: 20110328
  4. SUCRALFATE [Concomitant]
  5. PACLITAXEL [Suspect]
     Dosage: 365 MG
     Dates: end: 20110328
  6. BLM [Concomitant]

REACTIONS (7)
  - OESOPHAGITIS [None]
  - OESOPHAGEAL ULCER [None]
  - HYPOPHAGIA [None]
  - ASTHENIA [None]
  - MALNUTRITION [None]
  - ABDOMINAL PAIN UPPER [None]
  - ACTIVITIES OF DAILY LIVING IMPAIRED [None]
